FAERS Safety Report 13189689 (Version 1)
Quarter: 2017Q1

REPORT INFORMATION
  Report Type: Report from Study
  Country: US (occurrence: US)
  Receive Date: 20170206
  Receipt Date: 20170206
  Transmission Date: 20170428
  Serious: No
  Sender: FDA-Public Use
  Company Number: US-AMGEN-USASL2017017964

PATIENT
  Age: 4 Year
  Sex: Female

DRUGS (2)
  1. ENBREL [Suspect]
     Active Substance: ETANERCEPT
     Indication: JUVENILE IDIOPATHIC ARTHRITIS
     Dosage: 0.5 MG, UNK
     Route: 065
     Dates: end: 20170102
  2. ENBREL [Suspect]
     Active Substance: ETANERCEPT
     Dosage: 0.8 MG, UNK
     Route: 065
     Dates: start: 20170102

REACTIONS (2)
  - Pyrexia [Unknown]
  - Headache [Unknown]

NARRATIVE: CASE EVENT DATE: 20170102
